FAERS Safety Report 21977397 (Version 1)
Quarter: 2023Q1

REPORT INFORMATION
  Report Type: Spontaneous
  Country: US (occurrence: None)
  Receive Date: 20230209
  Receipt Date: 20230209
  Transmission Date: 20230418
  Serious: No
  Sender: FDA-Public Use
  Company Number: None

PATIENT
  Age: 89 Year
  Sex: Female

DRUGS (1)
  1. AMBRISENTAN [Suspect]
     Active Substance: AMBRISENTAN
     Dosage: 10 MG DAILY ORAL
     Route: 048

REACTIONS (4)
  - Fatigue [None]
  - Dyspnoea exertional [None]
  - Anxiety [None]
  - Back pain [None]

NARRATIVE: CASE EVENT DATE: 20230208
